FAERS Safety Report 8406565-7 (Version None)
Quarter: 2012Q2

REPORT INFORMATION
  Report Type: 
  Country: None (occurrence: None)
  Receive Date: 20120604
  Receipt Date: 20120524
  Transmission Date: 20120825
  Serious: Yes (Other)
  Sender: FDA-Public Use
  Company Number: JP-VERTEX PHARMACEUTICALS INC.-AE-2012-005600

PATIENT
  Age: 54 Year
  Sex: Male

DRUGS (18)
  1. PEG-INTRON [Concomitant]
     Route: 051
     Dates: start: 20120321, end: 20120327
  2. ACETAMINOPHEN [Concomitant]
     Route: 048
     Dates: start: 20120223
  3. PEG-INTRON [Concomitant]
     Route: 051
     Dates: start: 20120301, end: 20120306
  4. PEG-INTRON [Concomitant]
     Route: 051
     Dates: start: 20120101, end: 20120424
  5. ASPIRIN [Concomitant]
     Route: 048
  6. METFORMIN HCL [Concomitant]
     Route: 048
  7. PEG-INTRON [Concomitant]
     Route: 051
     Dates: start: 20120328, end: 20120404
  8. JANUVIA [Concomitant]
     Route: 048
  9. REBETOL [Concomitant]
     Route: 048
     Dates: start: 20120314
  10. RABEPRAZOLE SODIUM [Concomitant]
     Route: 048
  11. SIGMART [Concomitant]
     Route: 048
  12. BEZATOL SR [Concomitant]
     Route: 048
  13. PEG-INTRON [Concomitant]
     Indication: HEPATITIS C
     Route: 051
     Dates: start: 20120223, end: 20120229
  14. PEG-INTRON [Concomitant]
     Route: 051
     Dates: start: 20120425, end: 20120508
  15. REBETOL [Concomitant]
     Indication: HEPATITIS C
     Route: 048
     Dates: start: 20120223, end: 20120313
  16. TELAVIC (TELAPREVIR) [Suspect]
     Indication: HEPATITIS C
     Route: 048
     Dates: start: 20120223, end: 20120515
  17. PEG-INTRON [Concomitant]
     Route: 051
     Dates: start: 20120307, end: 20120320
  18. PEG-INTRON [Concomitant]
     Route: 051
     Dates: start: 20120509

REACTIONS (7)
  - INSOMNIA [None]
  - PLATELET COUNT DECREASED [None]
  - NAUSEA [None]
  - PAPULE [None]
  - NEUTROPHIL COUNT DECREASED [None]
  - ERYTHEMA [None]
  - HYPERURICAEMIA [None]
